FAERS Safety Report 8449345-9 (Version None)
Quarter: 2012Q2

REPORT INFORMATION
  Report Type: 
  Country: None (occurrence: None)
  Receive Date: 20120619
  Receipt Date: 20120614
  Transmission Date: 20120825
  Serious: Yes (Other)
  Sender: FDA-Public Use
  Company Number: US-PFIZER INC-2012120176

PATIENT
  Sex: Female

DRUGS (2)
  1. DETROL LA [Suspect]
     Dosage: 4 MG, 1X/DAY, BEDTIME
  2. PREMARIN [Suspect]
     Dosage: 0.625 MG, 1X/DAY

REACTIONS (1)
  - SURGERY [None]
